FAERS Safety Report 21275568 (Version 1)
Quarter: 2022Q3

REPORT INFORMATION
  Report Type: Report from Study
  Country: US (occurrence: US)
  Receive Date: 20220831
  Receipt Date: 20220831
  Transmission Date: 20221027
  Serious: No
  Sender: FDA-Public Use
  Company Number: US-SHIONOGI, INC-2022000513

PATIENT
  Age: 85 Year
  Sex: Female
  Weight: 65.7 kg

DRUGS (4)
  1. FETROJA [Suspect]
     Active Substance: CEFIDEROCOL SULFATE TOSYLATE
     Indication: Bacterial infection
     Dosage: 0.75 G, 12 HOUR (3 HR INFUSION)
     Route: 042
     Dates: start: 20210228, end: 20210319
  2. VANCOMYCIN [Concomitant]
     Active Substance: VANCOMYCIN
     Indication: Bacterial infection
     Dosage: UNKNOWN
     Route: 042
     Dates: start: 20210225, end: 20210314
  3. DAPTOMYCIN [Concomitant]
     Active Substance: DAPTOMYCIN
     Indication: Bacterial infection
     Dosage: UNKNOWN
     Route: 065
     Dates: start: 20210315, end: 20210317
  4. MEROPENEM [Concomitant]
     Active Substance: MEROPENEM
     Indication: Bacterial infection
     Dosage: UNKNOWN
     Route: 065
     Dates: start: 20210225, end: 20210228

REACTIONS (1)
  - Diarrhoea [Recovered/Resolved]

NARRATIVE: CASE EVENT DATE: 20210319
